FAERS Safety Report 23591001 (Version 1)
Quarter: 2024Q1

REPORT INFORMATION
  Report Type: Spontaneous
  Country: US (occurrence: None)
  Receive Date: 20240301
  Receipt Date: 20240301
  Transmission Date: 20240409
  Serious: Yes (Other)
  Sender: FDA-Public Use
  Company Number: None

PATIENT
  Age: 70 Year
  Sex: Female
  Weight: 85.2 kg

DRUGS (1)
  1. QUTENZA [Suspect]
     Active Substance: CAPSAICIN
     Indication: Diabetic neuropathy
     Dosage: OTHER FREQUENCY : 2 PATCES Q 90 DAYS;?
     Route: 061
     Dates: start: 20231211, end: 20231218

REACTIONS (6)
  - Rash [None]
  - Rash pruritic [None]
  - Blister [None]
  - Application site rash [None]
  - Application site vesicles [None]
  - Rash [None]

NARRATIVE: CASE EVENT DATE: 20231218
